FAERS Safety Report 21733812 (Version 1)
Quarter: 2022Q4

REPORT INFORMATION
  Report Type: Spontaneous
  Country: CN (occurrence: CN)
  Receive Date: 20221215
  Receipt Date: 20221215
  Transmission Date: 20230113
  Serious: Yes (Other)
  Sender: FDA-Public Use
  Company Number: CN-PFIZER INC-PV202200118557

PATIENT
  Age: 58 Year
  Sex: Male

DRUGS (1)
  1. CRIZOTINIB [Suspect]
     Active Substance: CRIZOTINIB
     Indication: Sarcomatoid carcinoma of the lung
     Dosage: UNK
     Dates: start: 20200331

REACTIONS (1)
  - Drug resistance [Unknown]
